FAERS Safety Report 6390749-6 (Version None)
Quarter: 2009Q4

REPORT INFORMATION
  Report Type: 
  Country: None (occurrence: None)
  Receive Date: 20091006
  Receipt Date: 20090918
  Transmission Date: 20100525
  Serious: Yes (Other)
  Sender: FDA-Public Use
  Company Number: JP-EISAI INC.-E2020-05130-SPO-JP

PATIENT
  Age: 93 Year
  Sex: Female

DRUGS (2)
  1. ARICEPT [Suspect]
     Indication: DEMENTIA ALZHEIMER'S TYPE
     Route: 048
     Dates: start: 20090301, end: 20090701
  2. ALDACTONE [Suspect]
     Indication: OEDEMA
     Route: 048
     Dates: start: 20090301, end: 20090701

REACTIONS (1)
  - GRANULOCYTOPENIA [None]
